FAERS Safety Report 26157599 (Version 1)
Quarter: 2025Q4

REPORT INFORMATION
  Report Type: Spontaneous
  Country: CA (occurrence: CA)
  Receive Date: 20251215
  Receipt Date: 20251215
  Transmission Date: 20260117
  Serious: Yes (Other)
  Sender: NOVARTIS
  Company Number: CA-002147023-NVSC2025CA178211

PATIENT
  Age: 90 Year
  Sex: Female

DRUGS (1)
  1. SCEMBLIX [Suspect]
     Active Substance: ASCIMINIB HYDROCHLORIDE
     Indication: Chronic myeloid leukaemia
     Dosage: 40 MG, BID (ONE HOUR BEFORE FOOD OR TWO HOURS AFTER FOOD FOR 2 WEEKS)
     Route: 065

REACTIONS (12)
  - Diarrhoea [Recovered/Resolved]
  - Constipation [Recovered/Resolved]
  - Myalgia [Recovered/Resolved]
  - Muscle spasms [Recovering/Resolving]
  - Asthenia [Not Recovered/Not Resolved]
  - Nervousness [Recovered/Resolved]
  - Balance disorder [Recovered/Resolved]
  - Fatigue [Recovered/Resolved]
  - Malaise [Recovered/Resolved]
  - Discomfort [Recovered/Resolved]
  - Dysuria [Not Recovered/Not Resolved]
  - Decreased appetite [Recovered/Resolved]
